FAERS Safety Report 17467839 (Version 8)
Quarter: 2022Q4

REPORT INFORMATION
  Report Type: Spontaneous
  Country: US (occurrence: US)
  Receive Date: 20200227
  Receipt Date: 20221027
  Transmission Date: 20230113
  Serious: No
  Sender: FDA-Public Use
  Company Number: US-VERTEX PHARMACEUTICALS-2020-003490

PATIENT
  Age: 24 Year
  Sex: Female
  Weight: 76 kg

DRUGS (24)
  1. TRIKAFTA [Suspect]
     Active Substance: ELEXACAFTOR\IVACAFTOR\TEZACAFTOR
     Indication: Cystic fibrosis
     Dosage: 2 TABS AM AND 1 TAB PM
     Route: 048
     Dates: start: 20191218, end: 20200709
  2. TRIKAFTA [Suspect]
     Active Substance: ELEXACAFTOR\IVACAFTOR\TEZACAFTOR
     Dosage: SWITCHED DOSE (BLUE PILL AM + ORANGE PILLS PM)
     Route: 048
     Dates: start: 20200710
  3. KEPPRA [Suspect]
     Active Substance: LEVETIRACETAM
     Indication: Epilepsy
     Dosage: 1 TAB
     Route: 065
  4. OSELTAMIVIR PHOSPHATE [Concomitant]
     Active Substance: OSELTAMIVIR PHOSPHATE
  5. ZENPEP [Concomitant]
     Active Substance: PANCRELIPASE AMYLASE\PANCRELIPASE LIPASE\PANCRELIPASE PROTEASE
     Dosage: 40000-126000-168000 UNIT CAP TAKE 3 CAPS
     Route: 048
  6. ZENPEP [Concomitant]
     Active Substance: PANCRELIPASE AMYLASE\PANCRELIPASE LIPASE\PANCRELIPASE PROTEASE
     Dosage: REDUCED DOSE
  7. ZENPEP [Concomitant]
     Active Substance: PANCRELIPASE AMYLASE\PANCRELIPASE LIPASE\PANCRELIPASE PROTEASE
     Dosage: BACK TO 3 DOSAGE OF ZENPEP 40
  8. PANTOPRAZOLE SODIUM [Concomitant]
     Active Substance: PANTOPRAZOLE SODIUM
     Dosage: UNK
  9. AZITHROMYCIN [Concomitant]
     Active Substance: AZITHROMYCIN
     Dosage: UNK
  10. LEVETIRACETAM [Concomitant]
     Active Substance: LEVETIRACETAM
     Indication: Epilepsy
  11. ALBUTEROL SULFATE [Concomitant]
     Active Substance: ALBUTEROL SULFATE
     Indication: Wheezing
     Dosage: 90/MCG/ACTUATION, INHALE 2 PUFFS INTO THE LUNGS EVERY 6 HRS AS NEEDED
  12. CHOLECALCIFEROL [Concomitant]
     Active Substance: CHOLECALCIFEROL
     Dosage: TAKE 2000 UNIT TWO TIMES DAILY
     Route: 048
  13. PULMOZYME [Concomitant]
     Active Substance: DORNASE ALFA
     Dosage: 2.5 MG PER DOSE BY NEBULIZATION
     Route: 055
  14. FLONASE [Concomitant]
     Active Substance: FLUTICASONE PROPIONATE
     Dosage: NASAL SPRAY/ 1 SPRAY BY EACH NARE ROUTE
     Route: 045
  15. CULTURELLE [Concomitant]
     Active Substance: LACTOBACILLUS RHAMNOSUS
     Dosage: 1 CAP
     Route: 048
  16. CLARITIN [Concomitant]
     Active Substance: LORATADINE
     Dosage: TAKE 10 MG, AS NEEDED
     Route: 048
  17. PROTONIX [Concomitant]
     Active Substance: PANTOPRAZOLE SODIUM
     Dosage: TAKE 1 TAB, DAILY
     Route: 048
  18. SODIUM CHLORIDE [Concomitant]
     Active Substance: SODIUM CHLORIDE
     Dosage: 4ML SOLUTION BY NEBULIZATION
     Route: 055
  19. SODIUM CHLORIDE [Concomitant]
     Active Substance: SODIUM CHLORIDE
  20. ALBUTEROL [Concomitant]
     Active Substance: ALBUTEROL
  21. ZANTAC [Concomitant]
     Active Substance: RANITIDINE HYDROCHLORIDE
     Dosage: 1 TAB
     Route: 048
  22. UNSPECIFIED INGREDIENT [Concomitant]
     Active Substance: UNSPECIFIED INGREDIENT
  23. ZITHROMAX [Concomitant]
     Active Substance: AZITHROMYCIN DIHYDRATE
     Dosage: TAKE 1 TABLET, 3 TIMES PER WEEK
  24. MIRALAX [Concomitant]
     Active Substance: POLYETHYLENE GLYCOL 3350
     Dosage: TAKE 17 G DAILY
     Route: 048

REACTIONS (16)
  - Headache [Recovered/Resolved]
  - Fatigue [Recovered/Resolved]
  - Gastric disorder [Recovering/Resolving]
  - Weight decreased [Recovering/Resolving]
  - Reflux gastritis [Unknown]
  - Chest pain [Unknown]
  - Stress [Unknown]
  - Anxiety [Recovering/Resolving]
  - Panic attack [Unknown]
  - Palpitations [Unknown]
  - Dyspepsia [Unknown]
  - Chest discomfort [Recovering/Resolving]
  - Insomnia [Recovering/Resolving]
  - Abdominal distension [Unknown]
  - Flatulence [Recovered/Resolved]
  - Influenza [Unknown]

NARRATIVE: CASE EVENT DATE: 20191201
